FAERS Safety Report 5298325-3 (Version None)
Quarter: 2007Q2

REPORT INFORMATION
  Report Type: 
  Country: None (occurrence: None)
  Receive Date: 20070416
  Receipt Date: 20070404
  Transmission Date: 20071010
  Serious: Yes (Death, Life-Threatening, Hospitalization, Other)
  Sender: FDA-Public Use
  Company Number: JP-PFIZER INC-2007006790

PATIENT
  Sex: Female
  Weight: 61 kg

DRUGS (10)
  1. EPIRUBICIN HYDROCHLORIDE SOLUTION, STERILE [Suspect]
     Indication: BREAST CANCER METASTATIC
     Dosage: DAILY DOSE:90MG
     Route: 042
     Dates: start: 20060801, end: 20061201
  2. FLUOROURACIL [Suspect]
     Indication: BREAST CANCER METASTATIC
     Dosage: DAILY DOSE:750MG
     Route: 042
     Dates: start: 20051219, end: 20061201
  3. ENDOXAN [Suspect]
     Indication: BREAST CANCER METASTATIC
     Dosage: DAILY DOSE:750MG
     Route: 042
     Dates: start: 20051219, end: 20061201
  4. ZOMETA [Suspect]
     Indication: METASTASES TO BONE
     Dosage: DAILY DOSE:4MG
     Route: 042
     Dates: start: 20060609, end: 20061201
  5. TAKEPRON [Concomitant]
     Route: 048
     Dates: start: 20060105, end: 20060106
  6. GASCON [Concomitant]
     Route: 048
     Dates: start: 20050422, end: 20070106
  7. MAGNESIUM OXIDE [Concomitant]
     Route: 048
     Dates: start: 20050121, end: 20070106
  8. LENDORMIN [Concomitant]
     Route: 048
     Dates: start: 20050105, end: 20070106
  9. MEVALOTIN [Concomitant]
     Route: 048
     Dates: start: 20050105, end: 20070106
  10. HYSRON [Concomitant]
     Route: 048
     Dates: start: 20060512, end: 20070106

REACTIONS (3)
  - CARDIAC FAILURE [None]
  - HEPATIC FAILURE [None]
  - PLEURAL EFFUSION [None]
